FAERS Safety Report 8602640-2 (Version None)
Quarter: 2012Q2

REPORT INFORMATION
  Report Type: 
  Country: None (occurrence: None)
  Receive Date: 20120423
  Receipt Date: 20090428
  Transmission Date: 20120825
  Serious: Yes (Other)
  Sender: FDA-Public Use
  Company Number: PHEH2009US04186

PATIENT
  Age: 70 Year
  Sex: Female

DRUGS (2)
  1. FEMARA [Suspect]
     Indication: BREAST CANCER METASTATIC
  2. FEMARA [Suspect]
     Indication: METASTASES TO SKIN

REACTIONS (2)
  - EJECTION FRACTION DECREASED [None]
  - BLOOD CHOLESTEROL INCREASED [None]
